FAERS Safety Report 5217791-2 (Version None)
Quarter: 2007Q1

REPORT INFORMATION
  Report Type: 
  Country: None (occurrence: None)
  Receive Date: 20061130
  Receipt Date: 20060919
  Transmission Date: 20070707
  Serious: Yes (Other)
  Sender: FDA-Public Use
  Company Number: US200608006312

PATIENT
  Age: 50 Year
  Sex: Male
  Weight: 95.2 kg

DRUGS (2)
  1. ZYPREXA [Suspect]
     Dates: start: 20030101, end: 20050101
  2. SEROQUEL /UNK/ (QUETIAPINE FUMARATE) [Concomitant]

REACTIONS (2)
  - DIABETES MELLITUS [None]
  - PANCREATITIS [None]
